FAERS Safety Report 15142928 (Version 1)
Quarter: 2018Q3

REPORT INFORMATION
  Report Type: Spontaneous
  Country: US (occurrence: US)
  Receive Date: 20180618
  Receipt Date: 20180618
  Transmission Date: 20181010
  Serious: Yes (Disabling)
  Sender: FDA-Public Use
  Company Number: None

PATIENT
  Age: 48 Year
  Sex: Male
  Weight: 65.25 kg

DRUGS (10)
  1. LEVAQUIN [Suspect]
     Active Substance: LEVOFLOXACIN
     Indication: PROPHYLAXIS
     Dosage: ?          QUANTITY:750 MG MILLIGRAM(S);?
     Route: 042
     Dates: start: 20170919, end: 20170922
  2. MAGNESIUM [Concomitant]
     Active Substance: MAGNESIUM
  3. TURMERIC [Concomitant]
     Active Substance: HERBALS\TURMERIC
  4. ENALAPRIL [Concomitant]
     Active Substance: ENALAPRIL
  5. AMLODIPINE [Concomitant]
     Active Substance: AMLODIPINE BESYLATE
  6. EPOGEN [Concomitant]
     Active Substance: ERYTHROPOIETIN
  7. COQ10 [Concomitant]
     Active Substance: UBIDECARENONE
  8. VITAMIN D [Concomitant]
     Active Substance: CHOLECALCIFEROL
  9. NIACINIMIDE [Concomitant]
  10. OMEGA 3 [Concomitant]
     Active Substance: OMEGA-3 FATTY ACIDS

REACTIONS (8)
  - Tachycardia [None]
  - Somnolence [None]
  - Muscle atrophy [None]
  - Renal impairment [None]
  - Abdominal distension [None]
  - Tremor [None]
  - Oedema [None]
  - Tendonitis [None]

NARRATIVE: CASE EVENT DATE: 20170919
